FAERS Safety Report 10219253 (Version 2)
Quarter: 2014Q2

REPORT INFORMATION
  Report Type: Spontaneous
  Country: FR (occurrence: FR)
  Receive Date: 20140605
  Receipt Date: 20140617
  Transmission Date: 20141212
  Serious: Yes (Hospitalization, Other)
  Sender: FDA-Public Use
  Company Number: FR-CELGENEUS-056-21880-14054529

PATIENT
  Age: 75 Year
  Sex: Female
  Weight: 58 kg

DRUGS (5)
  1. REVLIMID [Suspect]
     Indication: PLASMA CELL MYELOMA
     Route: 048
     Dates: start: 20130711, end: 20131209
  2. MLN9708/PLACEBO [Suspect]
     Indication: PLASMA CELL MYELOMA
     Route: 048
     Dates: start: 20130711, end: 20131203
  3. DEXAMETHASONE [Suspect]
     Indication: PLASMA CELL MYELOMA
     Route: 048
     Dates: start: 20130711, end: 20131203
  4. DEXAMETHASONE [Suspect]
     Indication: HYPERVISCOSITY SYNDROME
     Dosage: 40 MILLIGRAM
     Route: 048
     Dates: start: 20140103, end: 20140106
  5. DEXAMETHASONE [Suspect]
     Route: 065
     Dates: start: 20140110

REACTIONS (1)
  - Hyperviscosity syndrome [Recovered/Resolved]
